FAERS Safety Report 8964402 (Version 1)
Quarter: 2012Q4

REPORT INFORMATION
  Report Type: 
  Country: US (occurrence: US)
  Receive Date: 20121214
  Receipt Date: 20121214
  Transmission Date: 20130627
  Serious: No
  Sender: FDA-Public Use
  Company Number: US-GLAXOSMITHKLINE-A0981833A

PATIENT
  Sex: Male

DRUGS (11)
  1. AVODART [Suspect]
     Indication: BENIGN PROSTATIC HYPERPLASIA
     Dosage: .5MG Per day
     Route: 048
     Dates: start: 201111, end: 20120529
  2. BABY ASPIRIN [Concomitant]
  3. FISH OIL [Concomitant]
  4. MULTIVITAMIN [Concomitant]
  5. NEXIUM [Concomitant]
  6. UNKNOWN MEDICATION [Concomitant]
  7. TERAZOSIN [Concomitant]
  8. AMLODIPINE [Concomitant]
  9. METOPROLOL [Concomitant]
  10. ROSUVASTATIN [Concomitant]
  11. LISINOPRIL [Concomitant]

REACTIONS (4)
  - Scratch [Unknown]
  - Pruritus [Unknown]
  - Rash generalised [Unknown]
  - Urticaria [Unknown]
